FAERS Safety Report 11487242 (Version 2)
Quarter: 2015Q4

REPORT INFORMATION
  Report Type: Spontaneous
  Country: US (occurrence: US)
  Receive Date: 20150910
  Receipt Date: 20151116
  Transmission Date: 20160304
  Serious: Yes (Hospitalization)
  Sender: FDA-Public Use
  Company Number: US-BAYER-2015-418135

PATIENT
  Age: 25 Year
  Sex: Female
  Weight: 113.38 kg

DRUGS (26)
  1. KETOROLAC [Concomitant]
     Active Substance: KETOROLAC\KETOROLAC TROMETHAMINE
  2. LASIX [Concomitant]
     Active Substance: FUROSEMIDE
  3. MIRENA [Suspect]
     Active Substance: LEVONORGESTREL
     Indication: CONTRACEPTION
     Dosage: 20 MCG/24HR, CONT
     Route: 015
     Dates: start: 20081111, end: 20121024
  4. VICODIN [Concomitant]
     Active Substance: ACETAMINOPHEN\HYDROCODONE BITARTRATE
     Dosage: UNK UNK, PRN
     Route: 048
  5. FIORICET [Concomitant]
     Active Substance: ACETAMINOPHEN\BUTALBITAL\CAFFEINE
  6. DEMEROL [Concomitant]
     Active Substance: MEPERIDINE HYDROCHLORIDE
     Route: 048
  7. ACETAZOLAMIDE. [Concomitant]
     Active Substance: ACETAZOLAMIDE
  8. ALEVE [Concomitant]
     Active Substance: NAPROXEN SODIUM
  9. ULTRAM [Concomitant]
     Active Substance: TRAMADOL HYDROCHLORIDE
  10. FLUOXETINE [Concomitant]
     Active Substance: FLUOXETINE HYDROCHLORIDE
  11. CLONAZEPAM. [Concomitant]
     Active Substance: CLONAZEPAM
     Indication: DEPRESSION
  12. BENADRYL [Concomitant]
     Active Substance: DIPHENHYDRAMINE HYDROCHLORIDE
     Route: 048
  13. DIFLUCAN [Concomitant]
     Active Substance: FLUCONAZOLE
  14. IBUPROFEN. [Concomitant]
     Active Substance: IBUPROFEN
  15. ALPRAZOLAM. [Concomitant]
     Active Substance: ALPRAZOLAM
  16. PROZAC [Concomitant]
     Active Substance: FLUOXETINE HYDROCHLORIDE
     Dosage: 60 MG, QD
     Route: 048
  17. XANAX [Concomitant]
     Active Substance: ALPRAZOLAM
  18. AMITRIPTYLINE [Concomitant]
     Active Substance: AMITRIPTYLINE
  19. LIDODERM [Concomitant]
     Active Substance: LIDOCAINE
  20. FLAGYL [Concomitant]
     Active Substance: METRONIDAZOLE\METRONIDAZOLE HYDROCHLORIDE
  21. BUSPAR [Concomitant]
     Active Substance: BUSPIRONE HYDROCHLORIDE
  22. ATIVAN [Concomitant]
     Active Substance: LORAZEPAM
     Route: 048
  23. MORPHINE [Concomitant]
     Active Substance: MORPHINE
  24. TORADOL [Concomitant]
     Active Substance: KETOROLAC TROMETHAMINE
  25. CLONAZEPAM. [Concomitant]
     Active Substance: CLONAZEPAM
     Indication: ANXIETY
     Dosage: 1 MG, TID
     Route: 048
  26. NAPROXEN. [Concomitant]
     Active Substance: NAPROXEN

REACTIONS (8)
  - Device issue [None]
  - Ovarian cyst [None]
  - Emotional distress [None]
  - Migraine [None]
  - Pain [None]
  - Benign intracranial hypertension [None]
  - Injury [None]
  - Fibromyalgia [None]

NARRATIVE: CASE EVENT DATE: 2009
